FAERS Safety Report 6244066-5 (Version None)
Quarter: 2009Q2

REPORT INFORMATION
  Report Type: 
  Country: None (occurrence: None)
  Receive Date: 20090623
  Receipt Date: 20090623
  Transmission Date: 20091009
  Serious: No
  Sender: FDA-Public Use
  Company Number: None

PATIENT
  Age: 54 Year
  Sex: Female
  Weight: 74.3899 kg

DRUGS (2)
  1. CELEXA [Suspect]
     Indication: ANXIETY
     Dosage: 20 MG DAILY ORAL
     Route: 048
     Dates: start: 20090101
  2. CELEXA [Suspect]
     Indication: DEPRESSION
     Dosage: 20 MG DAILY ORAL
     Route: 048
     Dates: start: 20090101

REACTIONS (4)
  - ANXIETY [None]
  - MUSCLE TWITCHING [None]
  - NERVOUSNESS [None]
  - TREMOR [None]
